FAERS Safety Report 18873889 (Version 6)
Quarter: 2022Q1

REPORT INFORMATION
  Report Type: Report from Study
  Country: US (occurrence: None)
  Receive Date: 20210210
  Receipt Date: 20220121
  Transmission Date: 20220424
  Serious: Yes (Death, Hospitalization, Other)
  Sender: FDA-Public Use
  Company Number: US-ROCHE-2764048

PATIENT
  Age: 71 Year
  Sex: Female
  Weight: 65.18 kg

DRUGS (2)
  1. ATEZOLIZUMAB [Suspect]
     Active Substance: ATEZOLIZUMAB
     Indication: Triple negative breast cancer
     Dosage: ON 25/SEP/2020, SHE RECEIVED LAST DOSE OF ATEZOLIZUMAB PRIOR TO ONSET OF SERIOUS ADVERSE EVENT.
     Route: 041
     Dates: start: 20200207
  2. OLAPARIB [Suspect]
     Active Substance: OLAPARIB
     Indication: Triple negative breast cancer
     Dosage: ON 10/OCT/2020 AND 12/OCT/2020, SHE RECEIVED LAST DOSE OF OLAPARIB PRIOR TO ONSET OF SERIOUS ADVERSE
     Route: 048
     Dates: start: 20200207

REACTIONS (4)
  - Anaemia [Unknown]
  - Ascites [Recovered/Resolved with Sequelae]
  - Failure to thrive [Recovered/Resolved with Sequelae]
  - Disease progression [Fatal]

NARRATIVE: CASE EVENT DATE: 20201010
